FAERS Safety Report 14212755 (Version 1)
Quarter: 2017Q4

REPORT INFORMATION
  Report Type: Spontaneous
  Country: IT (occurrence: IT)
  Receive Date: 20171122
  Receipt Date: 20171122
  Transmission Date: 20180321
  Serious: Yes (Hospitalization)
  Sender: FDA-Public Use
  Company Number: IT-PFIZER INC-2017500404

PATIENT
  Age: 56 Year

DRUGS (1)
  1. GEMCITABINA HOSPIRA [Suspect]
     Active Substance: GEMCITABINE HYDROCHLORIDE
     Indication: PANCREATIC CARCINOMA
     Dosage: 1000 MG/M2, CYCLIC
     Route: 042
     Dates: start: 20151215, end: 20170130

REACTIONS (6)
  - Gravitational oedema [Recovered/Resolved]
  - Haemolytic uraemic syndrome [Recovered/Resolved]
  - Haemolytic anaemia [Recovered/Resolved]
  - Proteinuria [Recovered/Resolved]
  - Intravascular haemolysis [Recovered/Resolved]
  - Hypertension [Recovered/Resolved]

NARRATIVE: CASE EVENT DATE: 20170113
